FAERS Safety Report 4353083-1 (Version None)
Quarter: 2004Q2

REPORT INFORMATION
  Report Type: 
  Country: None (occurrence: None)
  Receive Date: 20040430
  Receipt Date: 20040218
  Transmission Date: 20050107
  Serious: No
  Sender: FDA-Public Use
  Company Number: 204791

PATIENT
  Age: 58 Year
  Sex: Male
  Weight: 80.7 kg

DRUGS (10)
  1. XOLAIR [Suspect]
     Indication: ASTHMA
     Dosage: 225 MG, Q2W, INTRAMUSCULAR
     Route: 030
     Dates: start: 20031203
  2. LIPITOR [Concomitant]
  3. MEDROL (METHYLPREDNISONE) [Concomitant]
  4. VOLMAX (ALBUTEROL, ALBUTEROL SULFATE) [Concomitant]
  5. SINGULAIR [Concomitant]
  6. ADVAIR DISKUS [Concomitant]
  7. PROVENTIL INHALER (ALBUTEROL, ALBUTEROL SULFATE) [Concomitant]
  8. ALLERGY SHOTS (ALLERGENIC EXTRACTS) [Concomitant]
  9. NABUMETONE [Concomitant]
  10. NASONEX [Concomitant]

REACTIONS (1)
  - PRURITUS [None]
